FAERS Safety Report 16668114 (Version 3)
Quarter: 2019Q4

REPORT INFORMATION
  Report Type: Spontaneous
  Country: US (occurrence: US)
  Receive Date: 20190805
  Receipt Date: 20191025
  Transmission Date: 20200122
  Serious: No
  Sender: FDA-Public Use
  Company Number: US-PFIZER INC-2019325769

PATIENT
  Age: 63 Year
  Sex: Female

DRUGS (1)
  1. CHANTIX [Suspect]
     Active Substance: VARENICLINE TARTRATE
     Indication: SMOKING CESSATION THERAPY
     Dosage: 1 MG, UNK

REACTIONS (4)
  - Product prescribing error [Unknown]
  - Headache [Unknown]
  - Product dispensing error [Unknown]
  - Feeling abnormal [Unknown]
